FAERS Safety Report 11994883 (Version 1)
Quarter: 2016Q1

REPORT INFORMATION
  Report Type: Spontaneous
  Country: US (occurrence: US)
  Receive Date: 20160203
  Receipt Date: 20160203
  Transmission Date: 20160526
  Serious: Yes (Other)
  Sender: FDA-Public Use
  Company Number: US-RECKITT BENCKISER HEALTHCARE INT LIMITED-RB-81469-2016

PATIENT
  Age: 15 Year
  Sex: Male

DRUGS (1)
  1. MUCINEX [Suspect]
     Active Substance: GUAIFENESIN
     Indication: DRUG ABUSE
     Dosage: 2 DF, SINGLE
     Route: 065
     Dates: start: 20160121

REACTIONS (2)
  - Drug abuse [Unknown]
  - No adverse event [Unknown]

NARRATIVE: CASE EVENT DATE: 20160121
